FAERS Safety Report 25130282 (Version 1)
Quarter: 2025Q1

REPORT INFORMATION
  Report Type: Report from Study
  Country: US (occurrence: US)
  Receive Date: 20250327
  Receipt Date: 20250327
  Transmission Date: 20250409
  Serious: No
  Sender: ESPERION THERAPEUTICS
  Company Number: US-ESPERIONTHERAPEUTICS-2024USA01314

PATIENT
  Age: 85 Year
  Sex: Female
  Weight: 47.619 kg

DRUGS (1)
  1. BEMPEDOIC ACID\EZETIMIBE [Suspect]
     Active Substance: BEMPEDOIC ACID\EZETIMIBE
     Indication: Blood cholesterol increased
     Dosage: UNK, QD
     Route: 065
     Dates: start: 202408

REACTIONS (1)
  - Urinary tract infection [Unknown]

NARRATIVE: CASE EVENT DATE: 20240819
